FAERS Safety Report 8988154 (Version 1)
Quarter: 2012Q4

REPORT INFORMATION
  Report Type: 
  Country: US (occurrence: US)
  Receive Date: 20121227
  Receipt Date: 20121227
  Transmission Date: 20130627
  Serious: No
  Sender: FDA-Public Use
  Company Number: US-ASTRAZENECA-2011SE59892

PATIENT
  Age: 42 Year
  Sex: Female

DRUGS (14)
  1. NEXIUM [Suspect]
     Route: 048
     Dates: start: 20110923
  2. TOPROL XL [Suspect]
     Dosage: GENERIC
     Route: 048
  3. KLOR-CON M20 [Concomitant]
  4. METFORMIN [Concomitant]
  5. COREG CR [Concomitant]
  6. ALLOPURINOL [Concomitant]
  7. HYDROCHLORTHIAZIDE+LISINOPRIL [Concomitant]
  8. FLEXERIL [Concomitant]
  9. GLIMEPIRIDE [Concomitant]
  10. TOPAMAX [Concomitant]
  11. ZETIA [Concomitant]
  12. LOVAZA [Concomitant]
  13. TRAMADOL [Concomitant]
  14. RANITIDINE [Concomitant]

REACTIONS (7)
  - Back pain [Unknown]
  - Bursitis [Unknown]
  - Bursa disorder [Unknown]
  - Rhinitis allergic [Unknown]
  - Tenosynovitis [Unknown]
  - Tendon disorder [Unknown]
  - Tremor [Unknown]
